FAERS Safety Report 5366939-8 (Version None)
Quarter: 2007Q2

REPORT INFORMATION
  Report Type: 
  Country: None (occurrence: None)
  Receive Date: 20070622
  Receipt Date: 20070417
  Transmission Date: 20071010
  Serious: No
  Sender: FDA-Public Use
  Company Number: US-ASTRAZENECA-2007UW07492

PATIENT
  Age: 85 Year
  Sex: Male
  Weight: 68 kg

DRUGS (5)
  1. RHINOCORT [Suspect]
     Indication: RHINORRHOEA
     Dosage: 3-4 SPRAYS PER NOSTRIL
     Route: 045
     Dates: start: 20070401
  2. ATENOLOL [Concomitant]
     Route: 048
  3. LISINOPRIL [Concomitant]
     Route: 048
  4. CENTRUM SILVER [Concomitant]
  5. PEPCID AC [Concomitant]

REACTIONS (2)
  - NAUSEA [None]
  - VOMITING [None]
